FAERS Safety Report 22288548 (Version 6)
Quarter: 2023Q2

REPORT INFORMATION
  Report Type: Report from Study
  Country: CN (occurrence: None)
  Receive Date: 20230505
  Receipt Date: 20230612
  Transmission Date: 20230722
  Serious: Yes (Hospitalization)
  Sender: FDA-Public Use
  Company Number: CN-Eisai Medical Research-EC-2023-139564

PATIENT
  Age: 68 Year
  Sex: Male
  Weight: 62.5 kg

DRUGS (25)
  1. LENVATINIB [Suspect]
     Active Substance: LENVATINIB
     Indication: Oesophageal cancer metastatic
     Route: 048
     Dates: start: 20230424, end: 20230428
  2. LENVATINIB [Suspect]
     Active Substance: LENVATINIB
     Route: 048
     Dates: start: 20230505
  3. PEMBROLIZUMAB [Suspect]
     Active Substance: PEMBROLIZUMAB
     Indication: Oesophageal cancer metastatic
     Route: 041
     Dates: start: 20230424
  4. PACLITAXEL [Suspect]
     Active Substance: PACLITAXEL
     Indication: Oesophageal cancer metastatic
     Route: 042
     Dates: start: 20230425, end: 20230425
  5. CISPLATIN [Suspect]
     Active Substance: CISPLATIN
     Indication: Oesophageal cancer metastatic
     Route: 042
     Dates: start: 20230425, end: 20230427
  6. CISPLATIN [Suspect]
     Active Substance: CISPLATIN
     Route: 042
     Dates: start: 20230518
  7. XIN KE SHU [Concomitant]
     Dates: start: 202001
  8. PYRIDOXINE [Concomitant]
     Active Substance: PYRIDOXINE
     Dates: start: 20230424, end: 20230429
  9. ASCORBIC ACID [Concomitant]
     Active Substance: ASCORBIC ACID
     Dates: start: 20230424, end: 20230429
  10. DIPHENHYDRAMINE HYDROCHLORIDE [Concomitant]
     Active Substance: DIPHENHYDRAMINE HYDROCHLORIDE
     Dates: start: 20230405, end: 20230425
  11. APREPITANT [Concomitant]
     Active Substance: APREPITANT
     Dates: start: 20230425, end: 20230427
  12. METOCLOPRAMIDE [Concomitant]
     Active Substance: METOCLOPRAMIDE
     Dates: start: 20230425, end: 20230428
  13. TROPISETRON HYDROCHLORIDE [Concomitant]
     Active Substance: TROPISETRON HYDROCHLORIDE
     Dates: start: 20230425, end: 20230427
  14. OLANZAPINE [Concomitant]
     Active Substance: OLANZAPINE
     Dates: start: 20230425, end: 20230427
  15. DEXAMETHASONE SODIUM PHOSPHATE [Concomitant]
     Active Substance: DEXAMETHASONE SODIUM PHOSPHATE
     Dates: start: 20230425, end: 20230428
  16. TORSEMIDE [Concomitant]
     Active Substance: TORSEMIDE
     Dates: start: 20230425, end: 20230427
  17. OXYCODONE HYDROCHLORIDE [Concomitant]
     Active Substance: OXYCODONE HYDROCHLORIDE
     Dates: start: 20230427, end: 20230428
  18. MORPHINE HYDROCHLORIDE [Concomitant]
     Active Substance: MORPHINE HYDROCHLORIDE
     Dates: start: 20230427, end: 20230427
  19. FAT [Concomitant]
     Dates: start: 20230428, end: 20230428
  20. FU FANG DANG GUI ZHU SHE YE [Concomitant]
     Dates: start: 20230428, end: 20230428
  21. CILASTATIN SODIUM [Concomitant]
     Active Substance: CILASTATIN SODIUM
     Dates: start: 20230428, end: 20230502
  22. MAGNESIUM ISOGLYCYRRHIZINATE [Concomitant]
     Active Substance: MAGNESIUM ISOGLYCYRRHIZINATE
     Dates: start: 20230429, end: 20230506
  23. POTASSIUM [Concomitant]
     Active Substance: POTASSIUM
     Dates: start: 20230429, end: 20230429
  24. SODIUM CHLORIDE [Concomitant]
     Active Substance: SODIUM CHLORIDE
     Dates: start: 20230429, end: 20230429
  25. FAT EMULSION AND AMINO ACIDS (18) [Concomitant]
     Dates: start: 20230429, end: 20230429

REACTIONS (3)
  - Platelet count decreased [Recovered/Resolved]
  - White blood cell count decreased [Recovered/Resolved]
  - Neutrophil count decreased [Recovered/Resolved]

NARRATIVE: CASE EVENT DATE: 20230429
